FAERS Safety Report 5450329-3 (Version None)
Quarter: 2007Q3

REPORT INFORMATION
  Report Type: 
  Country: None (occurrence: None)
  Receive Date: 20070912
  Receipt Date: 20070831
  Transmission Date: 20080115
  Serious: Yes (Life-Threatening, Other)
  Sender: FDA-Public Use
  Company Number: CN-PFIZER INC-2007063184

PATIENT
  Age: 49 Year
  Sex: Female

DRUGS (2)
  1. SULPERAZON [Suspect]
     Indication: BRONCHITIS CHRONIC
     Route: 042
     Dates: start: 20070731, end: 20070731
  2. ZITHROMAX [Concomitant]
     Route: 048

REACTIONS (5)
  - ANAPHYLACTIC SHOCK [None]
  - ASTHENIA [None]
  - ECG SIGNS OF MYOCARDIAL ISCHAEMIA [None]
  - LOSS OF CONSCIOUSNESS [None]
  - MENTAL IMPAIRMENT [None]
